FAERS Safety Report 8827438 (Version 1)
Quarter: 2012Q4

REPORT INFORMATION
  Report Type: 
  Country: NZ (occurrence: NZ)
  Receive Date: 20121008
  Receipt Date: 20121008
  Transmission Date: 20130627
  Serious: Yes (Hospitalization, Other)
  Sender: FDA-Public Use
  Company Number: NZ-JNJFOC-20120911746

PATIENT
  Age: 51 Year
  Sex: Female

DRUGS (4)
  1. REMICADE [Suspect]
     Indication: COLITIS ULCERATIVE
     Route: 042
  2. REMICADE [Suspect]
     Indication: COLITIS ULCERATIVE
     Route: 042
  3. CECLOR [Concomitant]
     Route: 048
  4. METHOTREXATE [Concomitant]
     Route: 065

REACTIONS (4)
  - Colitis ulcerative [Unknown]
  - Arthritis bacterial [Unknown]
  - Colitis [Unknown]
  - Appendicectomy [Unknown]
